FAERS Safety Report 4958847-9 (Version None)
Quarter: 2006Q1

REPORT INFORMATION
  Report Type: 
  Country: None (occurrence: None)
  Receive Date: 20060324
  Receipt Date: 20060301
  Transmission Date: 20060701
  Serious: Yes (Hospitalization, Disabling)
  Sender: FDA-Public Use
  Company Number: 416085

PATIENT
  Age: 17 Year
  Sex: Female
  Weight: 72.6 kg

DRUGS (1)
  1. ACCUTANE [Suspect]
     Indication: ACNE
     Dosage: ORAL
     Route: 048
     Dates: start: 19941004, end: 19941107

REACTIONS (73)
  - ABORTION INDUCED [None]
  - ACCIDENT [None]
  - ALCOHOLISM [None]
  - ANAEMIA [None]
  - ANAL FISSURE [None]
  - ANXIETY [None]
  - BACK INJURY [None]
  - BACK PAIN [None]
  - BILIARY DYSKINESIA [None]
  - BLOOD CHOLESTEROL INCREASED [None]
  - CATARACT [None]
  - CHOLECYSTITIS [None]
  - COLITIS [None]
  - COLITIS ISCHAEMIC [None]
  - COLITIS ULCERATIVE [None]
  - COMPLICATION OF PREGNANCY [None]
  - CONJUNCTIVITIS [None]
  - CONSTIPATION [None]
  - DEPRESSION [None]
  - DRUG EXPOSURE DURING PREGNANCY [None]
  - EAR PAIN [None]
  - EPISTAXIS [None]
  - EXCORIATION [None]
  - EXPOSURE TO COMMUNICABLE DISEASE [None]
  - FACE INJURY [None]
  - FALL [None]
  - GASTRIC ULCER [None]
  - GASTRIC ULCER HAEMORRHAGE [None]
  - GASTRIC ULCER PERFORATION [None]
  - GASTRITIS [None]
  - GASTROOESOPHAGEAL REFLUX DISEASE [None]
  - GENERALISED ANXIETY DISORDER [None]
  - GENITAL DISCHARGE [None]
  - HAEMORRHOIDS [None]
  - HORDEOLUM [None]
  - HORMONE LEVEL ABNORMAL [None]
  - ILEUS [None]
  - INDURATION [None]
  - INFLAMMATORY BOWEL DISEASE [None]
  - INFLUENZA [None]
  - INJURY [None]
  - INTESTINAL HAEMORRHAGE [None]
  - IRRITABLE BOWEL SYNDROME [None]
  - JOINT DISLOCATION [None]
  - JOINT SPRAIN [None]
  - LACERATION [None]
  - LYMPHOID TISSUE HYPERPLASIA [None]
  - MEMORY IMPAIRMENT [None]
  - MIGRAINE [None]
  - MOOD ALTERED [None]
  - MOOD SWINGS [None]
  - MOUTH INJURY [None]
  - MULTI-ORGAN DISORDER [None]
  - NEURITIS [None]
  - NODULE [None]
  - OVARIAN CYST [None]
  - PREGNANCY [None]
  - PROCTITIS [None]
  - PROCTITIS ULCERATIVE [None]
  - RADICULITIS [None]
  - RECTAL HAEMORRHAGE [None]
  - RENAL CYST [None]
  - SHOULDER PAIN [None]
  - SINUSITIS [None]
  - SPINAL DISORDER [None]
  - TATTOO [None]
  - TENSION HEADACHE [None]
  - THIRST [None]
  - THREATENED LABOUR [None]
  - TINNITUS [None]
  - TONSILLITIS [None]
  - VERTIGO [None]
  - VULVOVAGINAL MYCOTIC INFECTION [None]
